FAERS Safety Report 6237003-0 (Version None)
Quarter: 2009Q2

REPORT INFORMATION
  Report Type: 
  Country: None (occurrence: None)
  Receive Date: 20090619
  Receipt Date: 20090318
  Transmission Date: 20091009
  Serious: No
  Sender: FDA-Public Use
  Company Number: US-ASTRAZENECA-2009UW07052

PATIENT
  Sex: Female

DRUGS (8)
  1. SYMBICORT [Suspect]
     Dosage: 160 UG
     Route: 055
  2. ZYRTEC [Concomitant]
  3. BENADRYL [Concomitant]
  4. SINGULAIR [Concomitant]
  5. PROTONIX [Concomitant]
  6. NORVASC [Concomitant]
  7. AEROBID [Concomitant]
  8. FORADIL [Concomitant]

REACTIONS (3)
  - COUGH [None]
  - DRUG INEFFECTIVE [None]
  - ILL-DEFINED DISORDER [None]
